FAERS Safety Report 7399148-1 (Version None)
Quarter: 2011Q1

REPORT INFORMATION
  Report Type: 
  Country: None (occurrence: None)
  Receive Date: 20110301
  Receipt Date: 20100303
  Transmission Date: 20110831
  Serious: Yes (Death)
  Sender: FDA-Public Use
  Company Number: RB-03981-2010

PATIENT
  Sex: Male
  Weight: 83.5526 kg

DRUGS (6)
  1. QUETIAPINE [Concomitant]
  2. METHADONE [Suspect]
     Indication: PRODUCT USED FOR UNKNOWN INDICATION
  3. SUBOXONE [Suspect]
     Indication: PRODUCT USED FOR UNKNOWN INDICATION
  4. DIVALPROEX [Concomitant]
  5. LISINOPRIL [Concomitant]
  6. OMEPRAZOLE [Concomitant]

REACTIONS (2)
  - OVERDOSE [None]
  - ACCIDENTAL OVERDOSE [None]
